FAERS Safety Report 9837082 (Version 3)
Quarter: 2014Q3

REPORT INFORMATION
  Report Type: Spontaneous
  Country: US (occurrence: US)
  Receive Date: 20140123
  Receipt Date: 20140808
  Transmission Date: 20150326
  Serious: Yes (Hospitalization, Other)
  Sender: FDA-Public Use
  Company Number: US-009507513-1401USA009987

PATIENT
  Sex: Female

DRUGS (1)
  1. NUVARING [Suspect]
     Active Substance: ETHINYL ESTRADIOL\ETONOGESTREL
     Dosage: INSERT 1 NEW RING VAGINALLY X3 WEEKS, REMOVE FOR 7 DAYS, THEN REPEAT
     Route: 067
     Dates: end: 20120609

REACTIONS (4)
  - Pulmonary mass [Unknown]
  - Pulmonary embolism [Unknown]
  - Syncope [Unknown]
  - Deep vein thrombosis [Unknown]

NARRATIVE: CASE EVENT DATE: 20120519
